FAERS Safety Report 10070394 (Version 2)
Quarter: 2014Q2

REPORT INFORMATION
  Report Type: Spontaneous
  Country: PH (occurrence: PH)
  Receive Date: 20140410
  Receipt Date: 20140422
  Transmission Date: 20141212
  Serious: Yes (Hospitalization)
  Sender: FDA-Public Use
  Company Number: PH-B.I. PHARMACEUTICALS,INC./RIDGEFIELD-2014-BI-15433RP

PATIENT
  Age: 75 Year
  Sex: Female

DRUGS (4)
  1. PRADAXA [Suspect]
     Indication: CEREBROVASCULAR ACCIDENT PROPHYLAXIS
     Route: 065
     Dates: start: 2013, end: 20140403
  2. PRADAXA [Suspect]
     Indication: ATRIAL FIBRILLATION
  3. DIGOXIN [Concomitant]
     Route: 065
  4. MEMANTINE [Concomitant]
     Route: 065

REACTIONS (3)
  - Haematochezia [Not Recovered/Not Resolved]
  - Haematuria [Not Recovered/Not Resolved]
  - Blood creatinine increased [Not Recovered/Not Resolved]
